FAERS Safety Report 16633307 (Version 1)
Quarter: 2020Q3

REPORT INFORMATION
  Report Type: Spontaneous
  Country: US (occurrence: US)
  Receive Date: 20190725
  Receipt Date: 20190725
  Transmission Date: 20201104
  Serious: No
  Sender: FDA-Public Use
  Company Number: US-TARO-2019TAR00109

PATIENT
  Age: 72 Year
  Sex: Female

DRUGS (4)
  1. TEA TREE OIL. [Suspect]
     Active Substance: TEA TREE OIL
     Indication: ONYCHOMYCOSIS
     Dosage: UNK
     Route: 061
     Dates: start: 2019
  2. PURO3 OZONATED CREAM [Suspect]
     Active Substance: COSMETICS
     Indication: ONYCHOMYCOSIS
     Dosage: UNK
     Route: 061
     Dates: start: 2019
  3. LAMISIL [Suspect]
     Active Substance: TERBINAFINE HYDROCHLORIDE
     Indication: ONYCHOMYCOSIS
     Dosage: UNK, EVERY 48 HOURS
     Route: 061
     Dates: start: 20190125, end: 20190208
  4. VICKS VAPORUB [Suspect]
     Active Substance: CAMPHOR (SYNTHETIC)\EUCALYPTUS OIL\MENTHOL
     Indication: ONYCHOMYCOSIS
     Dosage: UNK
     Route: 061
     Dates: start: 2019

REACTIONS (7)
  - Product administered at inappropriate site [Recovered/Resolved]
  - Rash [Not Recovered/Not Resolved]
  - Off label use [Recovered/Resolved]
  - Pruritus [Not Recovered/Not Resolved]
  - Inappropriate schedule of product administration [Recovered/Resolved]
  - Hypersensitivity [Not Recovered/Not Resolved]
  - Drug interaction [Recovered/Resolved]

NARRATIVE: CASE EVENT DATE: 20190125
